FAERS Safety Report 17457663 (Version 1)
Quarter: 2020Q1

REPORT INFORMATION
  Report Type: Spontaneous
  Country: CN (occurrence: CN)
  Receive Date: 20200225
  Receipt Date: 20200225
  Transmission Date: 20200409
  Serious: Yes (Death, Hospitalization)
  Sender: FDA-Public Use
  Company Number: CN-ANIPHARMA-2020-CN-000042

PATIENT
  Age: 20 Month
  Sex: Male

DRUGS (2)
  1. IBUPROFEN (NON-SPECIFIC) [Suspect]
     Active Substance: IBUPROFEN
     Indication: PYREXIA
     Route: 048
  2. JAPANESE ENCEPHALITIS VIRUS VACCINE INACTIVATED [Suspect]
     Active Substance: JAPANESE ENCEPHALITIS VIRUS STRAIN NAKAYAMA-NIH ANTIGEN (FORMALDEHYDE INACTIVATED)
     Indication: IMMUNISATION

REACTIONS (1)
  - Reye^s syndrome [Fatal]
